FAERS Safety Report 7802557-7 (Version None)
Quarter: 2011Q4

REPORT INFORMATION
  Report Type: 
  Country: None (occurrence: None)
  Receive Date: 20111007
  Receipt Date: 20110929
  Transmission Date: 20120403
  Serious: Yes (Death, Other)
  Sender: FDA-Public Use
  Company Number: US-BAYER-200813543NA

PATIENT
  Age: 58 Year
  Sex: Female
  Weight: 86.168 kg

DRUGS (32)
  1. AMIODARONE HCL [Concomitant]
     Dosage: 400 MG, TID
     Dates: start: 20050301
  2. AMLODIPINE BESYLATE [Concomitant]
     Dosage: UNK
     Dates: start: 20050301
  3. CLOPIDOGREL BISULFATE [Concomitant]
     Dosage: UNK
     Dates: start: 20050301
  4. TRASYLOL [Suspect]
     Indication: CORONARY ARTERY BYPASS
  5. AZTREONAM [Concomitant]
     Dosage: 1 G, TID
     Route: 042
     Dates: start: 20050301
  6. HYDRALAZINE HCL [Concomitant]
     Dosage: 75 MG, BID
     Route: 048
     Dates: start: 20040101
  7. LISINOPRIL [Concomitant]
     Dosage: 40 MG, QD
     Route: 048
     Dates: start: 20030101
  8. NOVOLIN [INSULIN] [Concomitant]
     Dosage: UNK
     Route: 058
     Dates: start: 20050301
  9. PLAVIX [Concomitant]
     Dosage: 75 MG, QD
     Route: 048
     Dates: start: 20040101
  10. ACETYLSALICYLIC ACID SRT [Concomitant]
     Dosage: 325 MG, QD
     Route: 048
     Dates: start: 20050302
  11. TRASYLOL [Suspect]
     Indication: AORTIC VALVE REPLACEMENT
     Dosage: 50 ML/HOUR INFUSION
     Route: 042
     Dates: start: 20050311, end: 20050311
  12. TRASYLOL [Suspect]
     Indication: MITRAL VALVE REPLACEMENT
     Dosage: 100 ML BYPASS PRIME
     Dates: start: 20050311, end: 20050311
  13. LASIX [Concomitant]
     Dosage: UNK
     Route: 042
     Dates: start: 20050302
  14. LIPITOR [Concomitant]
     Dosage: 10 MG, QD
     Route: 048
     Dates: start: 20030101
  15. VANCOMYCIN [Concomitant]
     Dosage: 1 GRAM
     Route: 042
     Dates: start: 20050301
  16. NORVASC [Concomitant]
     Dosage: 10 MG, QD
     Route: 048
     Dates: start: 20040101
  17. MAGNESIUM SULFATE [Concomitant]
     Dosage: 3 GRAMS
     Route: 042
     Dates: start: 20050311, end: 20050311
  18. CALCIUM CHLORIDE [Concomitant]
     Dosage: UNK
     Route: 042
     Dates: start: 20050311
  19. INSULIN [Concomitant]
     Indication: TYPE 2 DIABETES MELLITUS
     Dosage: 10 UNITS
     Route: 042
     Dates: start: 20050311, end: 20050318
  20. ACETAMINOPHEN [Concomitant]
     Dosage: UNK
     Route: 048
     Dates: start: 20050301
  21. COLACE [Concomitant]
     Dosage: 100 MG, TID
     Route: 048
     Dates: start: 20050301
  22. HEPARIN [Concomitant]
     Dosage: UNK
     Route: 042
     Dates: start: 20050302
  23. MINOXIDIL [Concomitant]
     Dosage: 1 MG, QD
     Route: 048
     Dates: start: 20050302
  24. ZESTRIL [Concomitant]
     Dosage: 20 MG, QD
     Route: 048
     Dates: start: 20020101
  25. HEPARIN [Concomitant]
     Dosage: 24,000 UNITS
     Route: 042
     Dates: start: 20050311, end: 20050311
  26. ZOSYN [Concomitant]
     Dosage: 1.5 GRAMS
     Route: 042
     Dates: start: 20050301
  27. ATENOLOL [Concomitant]
     Dosage: 100 MG, BID
     Route: 048
     Dates: start: 20040101
  28. COUMADIN [Concomitant]
     Dosage: UNK
     Dates: start: 20050301
  29. VERSED [Concomitant]
     Dosage: 5 MG
     Route: 042
     Dates: start: 20050311
  30. ATIVAN [Concomitant]
     Dosage: UNK
     Route: 042
     Dates: start: 20050301
  31. LOPRESSOR [Concomitant]
     Dosage: 50 MG, QD
     Route: 048
     Dates: start: 20020101
  32. NITROGLYCERIN [Concomitant]
     Dosage: UNK
     Route: 042
     Dates: start: 20050311, end: 20050311

REACTIONS (15)
  - DEATH [None]
  - RENAL INJURY [None]
  - ANXIETY [None]
  - FEAR [None]
  - MULTI-ORGAN FAILURE [None]
  - RENAL FAILURE [None]
  - UNEVALUABLE EVENT [None]
  - PAIN [None]
  - LIVER DISORDER [None]
  - EMOTIONAL DISTRESS [None]
  - STRESS [None]
  - ANHEDONIA [None]
  - RENAL IMPAIRMENT [None]
  - INJURY [None]
  - CARDIAC DISORDER [None]
